FAERS Safety Report 7321850-8 (Version None)
Quarter: 2011Q1

REPORT INFORMATION
  Report Type: 
  Country: None (occurrence: None)
  Receive Date: 20110228
  Receipt Date: 20110215
  Transmission Date: 20110831
  Serious: Yes (Other)
  Sender: FDA-Public Use
  Company Number: PHHY2011DE14017

PATIENT
  Age: 8 Year
  Sex: Female

DRUGS (10)
  1. PREDNISOLONE [Suspect]
     Dosage: 30 MG/KG PER DAY
  2. PREDNISOLONE [Suspect]
     Dosage: 2 MG/KG PER DAY
     Route: 048
  3. ANAKINRA [Suspect]
     Dosage: 2 MG/KG PER DAY
  4. PREDNISOLONE [Suspect]
     Dosage: 2 MG/KG PER DAY
  5. PREDNISOLONE [Suspect]
     Dosage: 10 MG, DAILY
  6. INDOMETHACIN [Concomitant]
  7. PREDNISOLONE [Suspect]
     Dosage: 5 MG, DAILY
  8. PREDNISOLONE [Suspect]
     Dosage: 1 MG/KG PER DAY
  9. PREDNISOLONE [Suspect]
     Dosage: 30 MG/KG PER DAY
     Route: 042
  10. METHYLPREDNISOLONE [Suspect]

REACTIONS (11)
  - MYELOID MATURATION ARREST [None]
  - FIBRIN D DIMER INCREASED [None]
  - MALAISE [None]
  - WEIGHT INCREASED [None]
  - HEPATOMEGALY [None]
  - INCREASED APPETITE [None]
  - TRANSAMINASES INCREASED [None]
  - PLATELET COUNT DECREASED [None]
  - PYREXIA [None]
  - HISTIOCYTOSIS HAEMATOPHAGIC [None]
  - SERUM FERRITIN INCREASED [None]
